FAERS Safety Report 9742587 (Version 1)
Quarter: 2013Q4

REPORT INFORMATION
  Report Type: Spontaneous
  Country: US (occurrence: US)
  Receive Date: 20131210
  Receipt Date: 20131210
  Transmission Date: 20140711
  Serious: No
  Sender: FDA-Public Use
  Company Number: US-GILEAD-2009-0024549

PATIENT
  Age: 26 Year
  Sex: Female
  Weight: 90.72 kg

DRUGS (12)
  1. LETAIRIS [Suspect]
     Indication: PULMONARY ARTERIAL HYPERTENSION
     Route: 048
     Dates: start: 200902, end: 20090918
  2. REVATIO [Concomitant]
  3. CELLCEPT [Concomitant]
  4. IBUPROFEN [Concomitant]
  5. DARVOCET [Concomitant]
  6. DOCUSATE [Concomitant]
  7. FISH OIL [Concomitant]
  8. FOLIC ACID [Concomitant]
  9. POTASSIUM [Concomitant]
  10. CALCIUM [Concomitant]
  11. METHOTREXATE [Concomitant]
  12. MULTIVITAMINS [Concomitant]

REACTIONS (1)
  - Oedema [Recovering/Resolving]
